FAERS Safety Report 9022235 (Version 1)
Quarter: 2013Q1

REPORT INFORMATION
  Report Type: Report from Study
  Country: US (occurrence: US)
  Receive Date: 20130118
  Receipt Date: 20130118
  Transmission Date: 20140127
  Serious: Yes (Hospitalization)
  Sender: FDA-Public Use
  Company Number: US-DX529-2013DX000006

PATIENT
  Age: 42 Year
  Sex: Female
  Weight: 52.16 kg

DRUGS (13)
  1. KALBITOR [Suspect]
     Indication: HEREDITARY ANGIOEDEMA
     Route: 058
     Dates: start: 20130106, end: 20130106
  2. CITALOPRAM [Concomitant]
     Indication: BIPOLAR DISORDER
     Route: 048
  3. SYNTHROID [Concomitant]
     Indication: HYPOTHYROIDISM
     Dosage: DOSE UNIT:112 MCG
     Route: 048
     Dates: start: 2005
  4. MECLIZINE HYDROCHLORIDE [Concomitant]
     Indication: PRODUCT USED FOR UNKNOWN INDICATION
     Route: 048
  5. DIAZEPAM [Concomitant]
     Indication: ANXIETY
     Route: 048
  6. DIAZEPAM [Concomitant]
     Indication: MUSCLE SPASMS
     Route: 048
  7. ADDERALL [Concomitant]
     Indication: ATTENTION DEFICIT/HYPERACTIVITY DISORDER
     Route: 048
  8. OMEPRAZOLE [Concomitant]
     Indication: GASTROOESOPHAGEAL REFLUX DISEASE
     Route: 048
  9. HYDROCODONE [Concomitant]
     Indication: BACK PAIN
     Route: 048
  10. HYDROCODONE [Concomitant]
     Indication: NECK PAIN
     Route: 048
  11. HYDROCODONE [Concomitant]
     Indication: PLANTAR FASCIITIS
     Route: 048
  12. TRAMADOL [Concomitant]
     Indication: BREAKTHROUGH PAIN
     Route: 048
  13. VITAMIN B 12 [Concomitant]
     Indication: PRODUCT USED FOR UNKNOWN INDICATION
     Dosage: DOSE UNIT:5000 MCG
     Route: 048

REACTIONS (6)
  - Malaise [Unknown]
  - Blood potassium decreased [Unknown]
  - Blood magnesium decreased [Unknown]
  - Headache [Recovered/Resolved]
  - Diarrhoea [Not Recovered/Not Resolved]
  - Drug ineffective [Unknown]
